FAERS Safety Report 6980435-3 (Version None)
Quarter: 2010Q3

REPORT INFORMATION
  Report Type: 
  Country: None (occurrence: None)
  Receive Date: 20100909
  Receipt Date: 20100901
  Transmission Date: 20110219
  Serious: No
  Sender: FDA-Public Use
  Company Number: 013546

PATIENT
  Age: 64 Year
  Sex: Male

DRUGS (4)
  1. VIMPAT [Suspect]
     Dosage: (200 MG BID)
  2. KEPPRA [Suspect]
     Dosage: (1500 MG BID)
  3. TOPIRAMATE [Concomitant]
  4. ZONISAMIDE [Concomitant]

REACTIONS (4)
  - CARDIAC DISORDER [None]
  - COMA [None]
  - EPILEPSY [None]
  - MYOCARDIAL INFARCTION [None]
